FAERS Safety Report 23482447 (Version 2)
Quarter: 2024Q3

REPORT INFORMATION
  Report Type: Report from Study
  Country: US (occurrence: US)
  Receive Date: 20240205
  Receipt Date: 20240916
  Transmission Date: 20241017
  Serious: No
  Sender: AGIOS PHARMACEUTICALS
  Company Number: US-AGIOS-2401US03629

PATIENT
  Sex: Female

DRUGS (2)
  1. MITAPIVAT [Suspect]
     Active Substance: MITAPIVAT
     Indication: Pyruvate kinase deficiency anaemia
     Dosage: 50 MILLIGRAM, BID
     Route: 048
     Dates: start: 20220423
  2. MITAPIVAT [Suspect]
     Active Substance: MITAPIVAT
     Dosage: 1 TABLET DAILY

REACTIONS (3)
  - Abdominal discomfort [Unknown]
  - Therapy cessation [Unknown]
  - Vomiting [Unknown]
